FAERS Safety Report 12990771 (Version 2)
Quarter: 2022Q4

REPORT INFORMATION
  Report Type: Report from Study
  Country: CA (occurrence: CA)
  Receive Date: 20161201
  Receipt Date: 20221230
  Transmission Date: 20230112
  Serious: Yes (Other)
  Sender: FDA-Public Use
  Company Number: CA-JNJFOC-20161128255

PATIENT
  Age: 52 Year
  Sex: Female
  Weight: 63.560 kg

DRUGS (1)
  1. STELARA [Suspect]
     Active Substance: USTEKINUMAB
     Indication: Psoriatic arthropathy
     Route: 058
     Dates: start: 20151201, end: 20160704

REACTIONS (1)
  - Lung neoplasm malignant [Unknown]
